FAERS Safety Report 24350845 (Version 4)
Quarter: 2025Q2

REPORT INFORMATION
  Report Type: Report from Study
  Country: US (occurrence: US)
  Receive Date: 20240923
  Receipt Date: 20250423
  Transmission Date: 20250716
  Serious: Yes (Other)
  Sender: ABBVIE
  Company Number: US-ABBVIE-5930759

PATIENT
  Age: 64 Year
  Sex: Female

DRUGS (4)
  1. HUMIRA [Suspect]
     Active Substance: ADALIMUMAB
     Indication: Psoriatic arthropathy
     Dosage: CITRATE FREE, FORM STRENGTH : 40 MG?DOSAGE FORM: SOLUTION FOR INJECTION IN PRE-FILLED PEN
     Route: 058
     Dates: start: 2022
  2. HUMIRA [Suspect]
     Active Substance: ADALIMUMAB
     Indication: Psoriasis
     Dosage: CITRATE FREE, FORM STRENGTH : 40 MG?DOSAGE FORM: SOLUTION FOR INJECTION IN PRE-FILLED PEN
     Route: 058
     Dates: start: 202408
  3. HUMIRA [Suspect]
     Active Substance: ADALIMUMAB
     Indication: Psoriasis
     Route: 058
     Dates: start: 20231211
  4. HUMIRA [Suspect]
     Active Substance: ADALIMUMAB
     Route: 058
     Dates: start: 20231121

REACTIONS (7)
  - Tendon rupture [Recovering/Resolving]
  - Tendon rupture [Recovering/Resolving]
  - Exostosis [Unknown]
  - Ligament rupture [Recovering/Resolving]
  - Pain in extremity [Not Recovered/Not Resolved]
  - Fatigue [Not Recovered/Not Resolved]
  - Foot operation [Unknown]

NARRATIVE: CASE EVENT DATE: 20220301
